FAERS Safety Report 9354656 (Version 3)
Quarter: 2013Q3

REPORT INFORMATION
  Report Type: Spontaneous
  Country: US (occurrence: US)
  Receive Date: 20130618
  Receipt Date: 20130905
  Transmission Date: 20140515
  Serious: Yes (Other)
  Sender: FDA-Public Use
  Company Number: US-ELI_LILLY_AND_COMPANY-US201305004601

PATIENT
  Sex: Female
  Weight: 91.61 kg

DRUGS (6)
  1. EVISTA [Suspect]
     Indication: OSTEOPOROSIS
     Dosage: 60 MG, QD
     Route: 048
     Dates: start: 200902, end: 20130508
  2. EVISTA [Suspect]
     Dosage: 60 MG, QD
     Route: 048
     Dates: start: 20130810
  3. LEVOTHYROXINE [Concomitant]
     Dosage: 137 UG, QD
  4. VITAMIN D [Concomitant]
     Dosage: 1000MG, QD
  5. TOPICORT [Concomitant]
     Indication: LICHEN SCLEROSUS
     Dosage: UNK, PRN
  6. ZANTAC [Concomitant]
     Indication: GASTROOESOPHAGEAL REFLUX DISEASE
     Dosage: 150MG, QD

REACTIONS (1)
  - Thrombocytopenia [Recovering/Resolving]
